FAERS Safety Report 6039138-4 (Version None)
Quarter: 2009Q1

REPORT INFORMATION
  Report Type: 
  Country: None (occurrence: None)
  Receive Date: 20090115
  Receipt Date: 20090113
  Transmission Date: 20090719
  Serious: Yes (Death, Hospitalization, Disabling)
  Sender: FDA-Public Use
  Company Number: BR-ABBOTT-08P-020-0481358-00

PATIENT
  Sex: Male
  Weight: 53 kg

DRUGS (1)
  1. HUMIRA [Suspect]
     Indication: RHEUMATOID ARTHRITIS
     Route: 058
     Dates: start: 20080301

REACTIONS (8)
  - APHASIA [None]
  - DIABETES MELLITUS [None]
  - GAIT DISTURBANCE [None]
  - PAIN [None]
  - RHEUMATOID ARTHRITIS [None]
  - SEPSIS [None]
  - SHOCK [None]
  - SOMNOLENCE [None]
